FAERS Safety Report 4360082-2 (Version None)
Quarter: 2004Q2

REPORT INFORMATION
  Report Type: 
  Country: None (occurrence: None)
  Receive Date: 20040519
  Receipt Date: 20040503
  Transmission Date: 20050107
  Serious: Yes (Other)
  Sender: FDA-Public Use
  Company Number: NL-JNJFOC-20040501544

PATIENT
  Age: 16 Day
  Sex: Female

DRUGS (1)
  1. DAKTARIN [Suspect]
     Dosage: 0.5 MEASURING SPOON QDS
     Route: 049

REACTIONS (3)
  - APNOEA [None]
  - CHOKING [None]
  - HYPOTONIA [None]
